FAERS Safety Report 26167852 (Version 1)
Quarter: 2025Q4

REPORT INFORMATION
  Report Type: Spontaneous
  Country: JP (occurrence: JP)
  Receive Date: 20251217
  Receipt Date: 20251217
  Transmission Date: 20260118
  Serious: Yes (Hospitalization, Other)
  Sender: BOEHRINGER INGELHEIM
  Company Number: JP-NBI-2025-BI-114791

PATIENT
  Age: 75 Year
  Sex: Female

DRUGS (1)
  1. HERNEXEOS [Suspect]
     Active Substance: ZONGERTINIB
     Indication: Lung neoplasm malignant
     Dosage: DAILY DOSE: 120 MILLIGRAM(S)
     Dates: start: 20251202, end: 20251209

REACTIONS (5)
  - Pyrexia [Unknown]
  - Tumour lysis syndrome [Unknown]
  - Blood creatinine increased [Recovered/Resolved]
  - Blood uric acid increased [Unknown]
  - Pericardial effusion [Unknown]

NARRATIVE: CASE EVENT DATE: 20251209
